FAERS Safety Report 8078167-6 (Version None)
Quarter: 2012Q1

REPORT INFORMATION
  Report Type: 
  Country: None (occurrence: None)
  Receive Date: 20120127
  Receipt Date: 20110726
  Transmission Date: 20120608
  Serious: No
  Sender: FDA-Public Use
  Company Number: US-BAUSCH-2011BL004971

PATIENT
  Age: 49 Year
  Sex: Female

DRUGS (2)
  1. ZYLET [Suspect]
     Indication: EYE ALLERGY
     Route: 047
     Dates: start: 20110723, end: 20110724
  2. ZYLET [Suspect]
     Indication: CONJUNCTIVITIS INFECTIVE
     Route: 047
     Dates: start: 20110723, end: 20110724

REACTIONS (4)
  - EYE IRRITATION [None]
  - HYPERSENSITIVITY [None]
  - DRUG INEFFECTIVE [None]
  - CONDITION AGGRAVATED [None]
